FAERS Safety Report 17047870 (Version 3)
Quarter: 2020Q1

REPORT INFORMATION
  Report Type: Report from Study
  Country: CL (occurrence: CL)
  Receive Date: 20191119
  Receipt Date: 20200129
  Transmission Date: 20200409
  Serious: Yes (Hospitalization, Other)
  Sender: FDA-Public Use
  Company Number: CL-JNJFOC-20191111872

PATIENT
  Age: 26 Year
  Sex: Female

DRUGS (1)
  1. REMICADE [Suspect]
     Active Substance: INFLIXIMAB
     Indication: CROHN^S DISEASE
     Route: 042
     Dates: start: 20190624

REACTIONS (4)
  - Abscess [Unknown]
  - Colectomy [Unknown]
  - Crohn^s disease [Unknown]
  - Fistula [Unknown]

NARRATIVE: CASE EVENT DATE: 20191024
